FAERS Safety Report 19144634 (Version 1)
Quarter: 2021Q2

REPORT INFORMATION
  Report Type: Spontaneous
  Country: GB (occurrence: GB)
  Receive Date: 20210416
  Receipt Date: 20210416
  Transmission Date: 20210717
  Serious: Yes (Death)
  Sender: FDA-Public Use
  Company Number: GB-CELLTRION INC.-2021GB004933

PATIENT

DRUGS (1)
  1. RITUXIMAB (UNKNOWN) [Suspect]
     Active Substance: RITUXIMAB
     Indication: POST TRANSPLANT LYMPHOPROLIFERATIVE DISORDER
     Dosage: COMPLETED AT LEAST 4 WEEKLY INFUSIONS OF RITUXIMAB 375 MG/M2

REACTIONS (1)
  - Liver transplant rejection [Fatal]
